FAERS Safety Report 4340845-X (Version None)
Quarter: 2004Q2

REPORT INFORMATION
  Report Type: 
  Country: None (occurrence: None)
  Receive Date: 20040413
  Receipt Date: 20040401
  Transmission Date: 20050107
  Serious: Yes (Other)
  Sender: FDA-Public Use
  Company Number: 2004022646

PATIENT
  Age: 79 Year
  Sex: Male
  Weight: 62.5964 kg

DRUGS (11)
  1. NEURONTIN [Suspect]
     Indication: MUSCLE SPASMS
     Dosage: 100 MG (DAILY),
     Dates: end: 20040101
  2. NORVASC [Suspect]
     Indication: HYPERTENSION
     Dosage: 2.5 MG (DAILY), ORAL
     Route: 048
  3. ACETYLSALICYLIC ACID SRT [Concomitant]
  4. NITROGLYCERIN [Concomitant]
  5. METOPROLOL (METOPROLOL) [Concomitant]
  6. EZETIMIBE (EZETIMIBE) [Concomitant]
  7. ALENDRONATE SODIUM [Concomitant]
  8. TERAZOSIN HYDROCHLORIDE [Concomitant]
  9. FINASTERIDE [Concomitant]
  10. SIMVASTATIN [Concomitant]
  11. ALL OTHER THERAPEUTIC PRODUCTS (ALL OTHER THERAPEUTIC PRODUCTS) [Concomitant]

REACTIONS (7)
  - ARTHRITIS BACTERIAL [None]
  - BALANCE DISORDER [None]
  - BLOOD PRESSURE INCREASED [None]
  - MUSCULOSKELETAL STIFFNESS [None]
  - NEUROPATHY PERIPHERAL [None]
  - PAIN [None]
  - VESTIBULAR DISORDER [None]
